FAERS Safety Report 10472247 (Version 1)
Quarter: 2014Q3

REPORT INFORMATION
  Report Type: Spontaneous
  Country: US (occurrence: None)
  Receive Date: 20140923
  Receipt Date: 20140923
  Transmission Date: 20150326
  Serious: Yes (Other)
  Sender: FDA-Public Use
  Company Number: None

PATIENT
  Age: 40 Year
  Sex: Female

DRUGS (1)
  1. QUETIAPINE [Suspect]
     Active Substance: QUETIAPINE
     Indication: AFFECTIVE DISORDER
     Route: 048
     Dates: start: 20140709, end: 20140710

REACTIONS (1)
  - Electrocardiogram QT prolonged [None]

NARRATIVE: CASE EVENT DATE: 20140710
